FAERS Safety Report 14679565 (Version 1)
Quarter: 2018Q1

REPORT INFORMATION
  Report Type: Spontaneous
  Country: IL (occurrence: IL)
  Receive Date: 20180326
  Receipt Date: 20180326
  Transmission Date: 20180509
  Serious: Yes (Hospitalization, Other)
  Sender: FDA-Public Use
  Company Number: IL-NOVOPROD-590993

PATIENT
  Age: 11 Year
  Sex: Female
  Weight: 45 kg

DRUGS (3)
  1. TREGLUDEC [Suspect]
     Active Substance: INSULIN DEGLUDEC
     Indication: PRODUCT USED FOR UNKNOWN INDICATION
     Dosage: UNK (19 UNITS ON 18-MAR-2018)
     Route: 065
  2. NOVORAPID [Suspect]
     Active Substance: INSULIN ASPART
     Indication: PRODUCT USED FOR UNKNOWN INDICATION
     Dosage: UNK
     Route: 065
  3. NOVORAPID [Suspect]
     Active Substance: INSULIN ASPART
     Dosage: 19 UNITS
     Route: 065

REACTIONS (4)
  - Lactic acidosis [Unknown]
  - Drug ineffective [Unknown]
  - Blood glucose increased [Unknown]
  - Ketonuria [Unknown]
